FAERS Safety Report 7843627-7 (Version None)
Quarter: 2011Q4

REPORT INFORMATION
  Report Type: 
  Country: None (occurrence: None)
  Receive Date: 20111025
  Receipt Date: 20111011
  Transmission Date: 20120403
  Serious: Yes (Hospitalization, Other)
  Sender: FDA-Public Use
  Company Number: DE-ROCHE-1003662

PATIENT
  Sex: Female
  Weight: 60 kg

DRUGS (2)
  1. HERCEPTIN [Suspect]
     Indication: BREAST CANCER
     Dates: start: 20110419
  2. HERCEPTIN [Suspect]
     Dosage: REEXPOSURE
     Dates: start: 20111005

REACTIONS (2)
  - BRADYCARDIA [None]
  - PERFORMANCE STATUS DECREASED [None]
